FAERS Safety Report 21331662 (Version 2)
Quarter: 2022Q3

REPORT INFORMATION
  Report Type: Spontaneous
  Country: US (occurrence: US)
  Receive Date: 20220914
  Receipt Date: 20220915
  Transmission Date: 20221026
  Serious: Yes (Other)
  Sender: FDA-Public Use
  Company Number: US-NOVARTISPH-NVSC2022US205976

PATIENT
  Age: 83 Year
  Sex: Female

DRUGS (1)
  1. TRAMETINIB [Suspect]
     Active Substance: TRAMETINIB
     Indication: Ovarian cancer
     Dosage: UNK
     Route: 065
     Dates: start: 20220912, end: 20220912

REACTIONS (2)
  - Transient ischaemic attack [Recovering/Resolving]
  - Blood sodium decreased [Recovering/Resolving]
